FAERS Safety Report 19886103 (Version 2)
Quarter: 2021Q3

REPORT INFORMATION
  Report Type: Spontaneous
  Country: US (occurrence: US)
  Receive Date: 20210927
  Receipt Date: 20210929
  Transmission Date: 20211014
  Serious: Yes (Other)
  Sender: FDA-Public Use
  Company Number: US-APOTEX-2021AP043198

PATIENT
  Age: 43 Year
  Sex: Male

DRUGS (7)
  1. LURASIDONE [Suspect]
     Active Substance: LURASIDONE
     Indication: BIPOLAR I DISORDER
     Dosage: 80 MILLIGRAM, QD
     Route: 065
  2. OXCARBAZEPINE. [Suspect]
     Active Substance: OXCARBAZEPINE
     Indication: BIPOLAR I DISORDER
     Dosage: 600 MILLIGRAM, BID
     Route: 065
  3. LAMICTAL [Suspect]
     Active Substance: LAMOTRIGINE
     Indication: BIPOLAR I DISORDER
     Dosage: 225 MILLIGRAM, BID
     Route: 065
  4. CLONAZEPAM. [Suspect]
     Active Substance: CLONAZEPAM
     Indication: BIPOLAR I DISORDER
     Dosage: 2 MILLIGRAM, QD
     Route: 065
  5. BENZTROPINE [BENZATROPINE] [Concomitant]
     Active Substance: BENZTROPINE
     Indication: PRODUCT USED FOR UNKNOWN INDICATION
     Dosage: 2 MILLIGRAM, BID
     Route: 065
  6. LITHIUM CARBONATE. [Suspect]
     Active Substance: LITHIUM CARBONATE
     Indication: BIPOLAR I DISORDER
     Dosage: UNK
     Route: 065
  7. PROPRANOLOL [Suspect]
     Active Substance: PROPRANOLOL HYDROCHLORIDE
     Indication: BIPOLAR I DISORDER
     Dosage: 40 MILLIGRAM, BID
     Route: 065

REACTIONS (8)
  - Hypnagogic hallucination [Recovered/Resolved]
  - Enuresis [Not Recovered/Not Resolved]
  - Rapid eye movement sleep behaviour disorder [Not Recovered/Not Resolved]
  - Sleep paralysis [Recovered/Resolved]
  - Restless legs syndrome [Not Recovered/Not Resolved]
  - Aggression [Not Recovered/Not Resolved]
  - Somnambulism [Not Recovered/Not Resolved]
  - Parasomnia [Not Recovered/Not Resolved]
